FAERS Safety Report 8231808-2 (Version None)
Quarter: 2012Q1

REPORT INFORMATION
  Report Type: 
  Country: None (occurrence: None)
  Receive Date: 20120323
  Receipt Date: 20120313
  Transmission Date: 20120608
  Serious: Yes (Other)
  Sender: FDA-Public Use
  Company Number: AU-JNJFOC-20120309990

PATIENT
  Sex: Female

DRUGS (1)
  1. REMICADE [Suspect]
     Indication: CROHN'S DISEASE
     Dosage: CEASED REMICADE 6 MONTHS AGO
     Route: 042
     Dates: end: 20110901

REACTIONS (2)
  - CROHN'S DISEASE [None]
  - RHEUMATOID ARTHRITIS [None]
